FAERS Safety Report 15458783 (Version 1)
Quarter: 2018Q4

REPORT INFORMATION
  Report Type: Spontaneous
  Country: US (occurrence: US)
  Receive Date: 20181003
  Receipt Date: 20181003
  Transmission Date: 20190204
  Serious: No
  Sender: FDA-Public Use
  Company Number: US-ENDO PHARMACEUTICALS INC-2018-012628

PATIENT
  Age: 84 Year
  Sex: Male
  Weight: 74.83 kg

DRUGS (4)
  1. VALSTAR [Suspect]
     Active Substance: VALRUBICIN
     Indication: BLADDER CANCER
     Dosage: UNK UNK, WEEKLY
     Route: 043
     Dates: start: 2017
  2. VALSTAR [Suspect]
     Active Substance: VALRUBICIN
     Dosage: UNK UNK, WEEKLY
     Route: 043
     Dates: start: 2018
  3. VITAMIN B COMPLEX [Suspect]
     Active Substance: CYANOCOBALAMIN\DEXPANTHENOL\NIACINAMIDE\PYRIDOXINE HYDROCHLORIDE\RIBOFLAVIN 5^-PHOSPHATE SODIUM\THIAMINE HYDROCHLORIDE\VITAMIN B COMPLEX
     Indication: MUSCULAR WEAKNESS
     Dosage: UNK UNKNOWN, UNKNOWN
     Route: 065
     Dates: end: 2017
  4. LISINOPRIL. [Concomitant]
     Active Substance: LISINOPRIL
     Indication: HYPERTENSION
     Dosage: UNK UNK, UNKNOWN

REACTIONS (2)
  - Urticaria [Recovering/Resolving]
  - Calculus bladder [Unknown]

NARRATIVE: CASE EVENT DATE: 201711
